FAERS Safety Report 25104354 (Version 3)
Quarter: 2025Q3

REPORT INFORMATION
  Report Type: Report from Study
  Country: CA (occurrence: None)
  Receive Date: 20250321
  Receipt Date: 20250912
  Transmission Date: 20251020
  Serious: Yes (Other)
  Sender: ORION
  Company Number: CA-PFIZER INC-202500060129

PATIENT
  Age: 64 Year
  Sex: Female

DRUGS (7)
  1. METHOTREXATE [Suspect]
     Active Substance: METHOTREXATE
     Indication: Product used for unknown indication
  2. SILIQ [Suspect]
     Active Substance: BRODALUMAB
     Indication: Psoriasis
  3. SILIQ [Suspect]
     Active Substance: BRODALUMAB
     Dosage: CYCLICAL
  4. ELIQUIS [Concomitant]
     Active Substance: APIXABAN
  5. FOLIC ACID [Concomitant]
     Active Substance: FOLIC ACID
  6. PROLIA [Concomitant]
     Active Substance: DENOSUMAB
  7. SYNTHROID [Concomitant]
     Active Substance: LEVOTHYROXINE SODIUM

REACTIONS (8)
  - Product dose omission issue [Not Recovered/Not Resolved]
  - Condition aggravated [Not Recovered/Not Resolved]
  - Peripheral swelling [Not Recovered/Not Resolved]
  - Peripheral venous disease [Not Recovered/Not Resolved]
  - Psoriasis [Not Recovered/Not Resolved]
  - Pneumonia [Not Recovered/Not Resolved]
  - Cough [Not Recovered/Not Resolved]
  - Transient ischaemic attack [Not Recovered/Not Resolved]
